FAERS Safety Report 8341265-3 (Version None)
Quarter: 2012Q2

REPORT INFORMATION
  Report Type: 
  Country: None (occurrence: None)
  Receive Date: 20120507
  Receipt Date: 20120427
  Transmission Date: 20120825
  Serious: No
  Sender: FDA-Public Use
  Company Number: US-B.I. PHARMACEUTICALS,INC./RIDGEFIELD-2012-BP-02795BP

PATIENT
  Age: 73 Year
  Sex: Female

DRUGS (2)
  1. SPIRIVA [Suspect]
     Indication: PROPHYLAXIS
     Dates: start: 20080101
  2. STEROIDS [Suspect]
     Indication: LUNG INFECTION

REACTIONS (2)
  - ADVERSE DRUG REACTION [None]
  - LUNG INFECTION [None]
